FAERS Safety Report 6745582-X (Version None)
Quarter: 2010Q2

REPORT INFORMATION
  Report Type: 
  Country: None (occurrence: None)
  Receive Date: 20100526
  Receipt Date: 20100526
  Transmission Date: 20101027
  Serious: Yes (Hospitalization)
  Sender: FDA-Public Use
  Company Number: None

PATIENT
  Sex: Female
  Weight: 57.7 kg

DRUGS (2)
  1. CARBOPLATIN [Suspect]
     Dosage: 426 MG
  2. TAXOL [Suspect]
     Dosage: 275 MG

REACTIONS (11)
  - ABDOMINAL PAIN [None]
  - CHEST PAIN [None]
  - CHILLS [None]
  - DEHYDRATION [None]
  - DYSPNOEA [None]
  - FLATULENCE [None]
  - HYPOPHAGIA [None]
  - NAUSEA [None]
  - PYREXIA [None]
  - URINARY TRACT DISORDER [None]
  - VOMITING [None]
